FAERS Safety Report 13691516 (Version 1)
Quarter: 2017Q2

REPORT INFORMATION
  Report Type: Spontaneous
  Country: US (occurrence: US)
  Receive Date: 20170626
  Receipt Date: 20170626
  Transmission Date: 20170830
  Serious: Yes (Death, Other)
  Sender: FDA-Public Use
  Company Number: US-ROCHE-1041904

PATIENT
  Age: 80 Year
  Sex: Female
  Weight: 63.9 kg

DRUGS (3)
  1. TNKASE [Suspect]
     Active Substance: TENECTEPLASE
     Indication: THROMBOLYSIS
     Route: 042
     Dates: start: 20120201, end: 20120204
  2. AMLODIPINE [Concomitant]
     Active Substance: AMLODIPINE BESYLATE
     Indication: HYPERTENSION
     Route: 048
     Dates: start: 20120201
  3. METOPROLOL. [Concomitant]
     Active Substance: METOPROLOL
     Indication: HYPERTENSION
     Route: 048
     Dates: start: 20120201

REACTIONS (3)
  - Product quality issue [Unknown]
  - Haemorrhage intracranial [Unknown]
  - Cerebral haemorrhage [Fatal]

NARRATIVE: CASE EVENT DATE: 20120204
